FAERS Safety Report 21206028 (Version 13)
Quarter: 2022Q4

REPORT INFORMATION
  Report Type: Report from Study
  Country: US (occurrence: US)
  Receive Date: 20220812
  Receipt Date: 20221201
  Transmission Date: 20230113
  Serious: Yes (Hospitalization)
  Sender: FDA-Public Use
  Company Number: US-NOVARTISTESTPH-NVSC2022US181277

PATIENT
  Sex: Female
  Weight: 10.204 kg

DRUGS (6)
  1. TREPROSTINIL [Suspect]
     Active Substance: TREPROSTINIL
     Indication: Pulmonary arterial hypertension
     Dosage: 114 NG/KG/MIN, CONT
     Route: 042
     Dates: start: 20220706
  2. TREPROSTINIL [Suspect]
     Active Substance: TREPROSTINIL
     Dosage: 111 NG/KG/MIN, CONT
     Route: 042
  3. REMODULIN [Suspect]
     Active Substance: TREPROSTINIL
     Indication: Product used for unknown indication
     Dosage: UNK, (CARTILAGE) REMUNITY REMODULIN
     Route: 065
  4. REMODULIN [Suspect]
     Active Substance: TREPROSTINIL
     Dosage: UNKCARTILAGE 1) REMUNITY REMODULIN
     Route: 058
     Dates: start: 20221123
  5. TRACLEER [Concomitant]
     Active Substance: BOSENTAN
     Indication: Product used for unknown indication
     Dosage: UNK
     Route: 065
  6. SILDENAFIL CITRATE [Concomitant]
     Active Substance: SILDENAFIL CITRATE
     Indication: Product used for unknown indication
     Dosage: UNK
     Route: 065

REACTIONS (12)
  - Condition aggravated [Recovering/Resolving]
  - Vascular device infection [Unknown]
  - Dyspnoea exertional [Unknown]
  - Cyanosis [Unknown]
  - Chest pain [Unknown]
  - Fatigue [Unknown]
  - Sinusitis [Unknown]
  - Injection site pain [Unknown]
  - Injection site swelling [Unknown]
  - Injection site erythema [Unknown]
  - Incorrect dose administered [Unknown]
  - Device malfunction [Unknown]
